FAERS Safety Report 25524423 (Version 1)
Quarter: 2025Q3

REPORT INFORMATION
  Report Type: Spontaneous
  Country: US (occurrence: None)
  Receive Date: 20250707
  Receipt Date: 20250707
  Transmission Date: 20251020
  Serious: No
  Sender: INCYTE
  Company Number: US-INCYTE CORPORATION-2025IN006995

PATIENT
  Age: 42 Year

DRUGS (2)
  1. JAKAFI [Suspect]
     Active Substance: RUXOLITINIB
     Indication: Still^s disease
     Route: 065
  2. KINERET [Concomitant]
     Active Substance: ANAKINRA
     Indication: Product used for unknown indication
     Route: 065

REACTIONS (11)
  - Staphylococcal infection [Unknown]
  - Gingival disorder [Unknown]
  - Flatulence [Unknown]
  - Eructation [Unknown]
  - Dyspepsia [Unknown]
  - Sleep disorder [Unknown]
  - Insomnia [Unknown]
  - Back pain [Unknown]
  - Neck pain [Unknown]
  - Off label use [Unknown]
  - Drug effective for unapproved indication [Unknown]
